FAERS Safety Report 5289626-3 (Version None)
Quarter: 2007Q2

REPORT INFORMATION
  Report Type: 
  Country: None (occurrence: None)
  Receive Date: 20070406
  Receipt Date: 20070326
  Transmission Date: 20071010
  Serious: Yes (Other)
  Sender: FDA-Public Use
  Company Number: PHBS2007JP05855

PATIENT
  Age: 51 Year
  Sex: Female

DRUGS (4)
  1. ALLEGRA [Concomitant]
  2. ASPIRIN [Concomitant]
     Dates: start: 20070317
  3. FERROMIA [Concomitant]
  4. VOLTAREN [Suspect]
     Dosage: 25 MG/DAY
     Route: 054
     Dates: start: 20070321

REACTIONS (3)
  - PALPITATIONS [None]
  - PARALYSIS [None]
  - TREMOR [None]
